FAERS Safety Report 10012930 (Version 2)
Quarter: 2016Q2

REPORT INFORMATION
  Report Type: Spontaneous
  Country: US (occurrence: US)
  Receive Date: 20140314
  Receipt Date: 20160422
  Transmission Date: 20160815
  Serious: Yes (Other)
  Sender: FDA-Public Use
  Company Number: US-FRI-1000064596

PATIENT
  Age: 45 Year
  Sex: Female

DRUGS (4)
  1. DIABETES MEDICATIONS NOS [Concomitant]
     Indication: DIABETES MELLITUS
  2. GABAPENTIN. [Concomitant]
     Active Substance: GABAPENTIN
  3. SAPHRIS [Suspect]
     Active Substance: ASENAPINE MALEATE
     Indication: SCHIZOPHRENIA
     Route: 060
     Dates: start: 2013
  4. HEART ARRHYTHMIA MEDICATIONS NOS [Concomitant]
     Indication: ARRHYTHMIA

REACTIONS (7)
  - Electrocardiogram QT prolonged [Not Recovered/Not Resolved]
  - Stomatitis [Not Recovered/Not Resolved]
  - Weight decreased [Not Recovered/Not Resolved]
  - Tongue ulceration [Not Recovered/Not Resolved]
  - Glossitis [Not Recovered/Not Resolved]
  - Psychogenic seizure [Unknown]
  - Decreased appetite [Not Recovered/Not Resolved]
